FAERS Safety Report 5193847-8 (Version None)
Quarter: 2006Q4

REPORT INFORMATION
  Report Type: 
  Country: None (occurrence: None)
  Receive Date: 20061228
  Receipt Date: 20061222
  Transmission Date: 20070319
  Serious: Yes (Other)
  Sender: FDA-Public Use
  Company Number: JP-AVENTIS-200614000JP

PATIENT

DRUGS (1)
  1. TAXOTERE [Suspect]
     Indication: BREAST CANCER
     Dosage: DOSE: 100 MG/BODY
     Route: 041

REACTIONS (3)
  - DIPLEGIA [None]
  - SPINAL CORD INFARCTION [None]
  - SPINAL CORD INJURY [None]
